FAERS Safety Report 7970481-5 (Version None)
Quarter: 2011Q4

REPORT INFORMATION
  Report Type: 
  Country: None (occurrence: None)
  Receive Date: 20111212
  Receipt Date: 20111208
  Transmission Date: 20120403
  Serious: Yes (Death)
  Sender: FDA-Public Use
  Company Number: TR-SANOFI-AVENTIS-2011SA080504

PATIENT
  Age: 51 Year
  Sex: Male

DRUGS (1)
  1. FUROSEMIDE [Suspect]
     Indication: HYPERTENSION
     Route: 042
     Dates: start: 20111111, end: 20111111

REACTIONS (2)
  - MYOCARDIAL INFARCTION [None]
  - HYPOTENSION [None]
